FAERS Safety Report 17460263 (Version 1)
Quarter: 2020Q1

REPORT INFORMATION
  Report Type: Spontaneous
  Country: US (occurrence: US)
  Receive Date: 20200213
  Receipt Date: 20200213
  Transmission Date: 20200409
  Serious: Yes (Hospitalization)
  Sender: FDA-Public Use
  Company Number: None

PATIENT
  Age: 53 Year
  Sex: Male

DRUGS (2)
  1. LITHIUM (LITHIUM CARBONATE 450MG TAB,SA) [Suspect]
     Active Substance: LITHIUM CARBONATE
     Indication: BIPOLAR DISORDER
     Route: 048
     Dates: end: 20191119
  2. LITHIUM (LITHIUM CARBONATE 450MG TAB,SA) [Suspect]
     Active Substance: LITHIUM CARBONATE
     Indication: MANIA
     Route: 048
     Dates: end: 20191119

REACTIONS (5)
  - Acute kidney injury [None]
  - Toxicity to various agents [None]
  - Confusional state [None]
  - Ataxia [None]
  - Dialysis [None]

NARRATIVE: CASE EVENT DATE: 20191119
